FAERS Safety Report 20967536 (Version 2)
Quarter: 2022Q4

REPORT INFORMATION
  Report Type: Spontaneous
  Country: US (occurrence: US)
  Receive Date: 20220616
  Receipt Date: 20221020
  Transmission Date: 20230112
  Serious: Yes (Other)
  Sender: FDA-Public Use
  Company Number: US-PFIZER INC-202200840413

PATIENT
  Sex: Male
  Weight: 99.79 kg

DRUGS (4)
  1. GABAPENTIN [Suspect]
     Active Substance: GABAPENTIN
     Indication: Pain
     Dosage: 1 DOSAGE FORM, TID (ONE TABLET BY MOUTH, THREE TIMES DAILY)
     Route: 065
  2. GABAPENTIN [Suspect]
     Active Substance: GABAPENTIN
     Indication: Back pain
  3. CELECOXIB [Suspect]
     Active Substance: CELECOXIB
     Indication: Pain
     Dosage: UNK
     Route: 065
  4. DEPO-MEDROL [Suspect]
     Active Substance: METHYLPREDNISOLONE ACETATE
     Indication: Product used for unknown indication
     Dosage: UNK (UNKNOWN AMOUNT; INJECTED INTO LEFT KNEE)
     Route: 065
     Dates: start: 202204

REACTIONS (7)
  - Haemorrhage [Unknown]
  - Pain in extremity [Unknown]
  - Mass [Unknown]
  - Joint swelling [Unknown]
  - Peripheral swelling [Unknown]
  - Extra dose administered [Unknown]
  - Drug ineffective [Unknown]
